FAERS Safety Report 7254291-2 (Version None)
Quarter: 2011Q1

REPORT INFORMATION
  Report Type: 
  Country: None (occurrence: None)
  Receive Date: 20110129
  Receipt Date: 20100128
  Transmission Date: 20110831
  Serious: No
  Sender: FDA-Public Use
  Company Number: US-ABBOTT-10P-163-0620069-00

PATIENT
  Sex: Male
  Weight: 82.628 kg

DRUGS (7)
  1. SPIRIVA [Concomitant]
     Indication: PRODUCT USED FOR UNKNOWN INDICATION
     Route: 055
  2. HUMIRA [Suspect]
     Dates: start: 20091224
  3. COUMADIN [Concomitant]
     Indication: PRODUCT USED FOR UNKNOWN INDICATION
     Dosage: 4MG ALTERNATED WITH 2MG ONCE EVERY OTHER DAY
     Route: 048
  4. ADVAIR [Concomitant]
     Indication: PRODUCT USED FOR UNKNOWN INDICATION
     Route: 055
  5. COMBIVENT [Concomitant]
     Indication: PRODUCT USED FOR UNKNOWN INDICATION
     Route: 055
  6. HUMIRA [Suspect]
     Indication: PSORIASIS
     Dosage: DAY 1
     Dates: start: 20091203, end: 20100128
  7. HUMIRA [Suspect]
     Route: 058
     Dates: start: 20091212, end: 20091212

REACTIONS (3)
  - PSORIASIS [None]
  - DYSPNOEA EXERTIONAL [None]
  - COUGH [None]
